FAERS Safety Report 11345789 (Version 1)
Quarter: 2015Q3

REPORT INFORMATION
  Report Type: Spontaneous
  Country: US (occurrence: US)
  Receive Date: 20150806
  Receipt Date: 20150806
  Transmission Date: 20151125
  Serious: Yes (Other)
  Sender: FDA-Public Use
  Company Number: US-ABBVIE-15P-163-1382200-00

PATIENT
  Age: 26 Year

DRUGS (5)
  1. DEPAKOTE [Suspect]
     Active Substance: DIVALPROEX SODIUM
     Route: 065
     Dates: start: 2015
  2. DEPAKOTE [Suspect]
     Active Substance: DIVALPROEX SODIUM
     Indication: SEIZURE
     Route: 065
  3. TOPAMAX [Suspect]
     Active Substance: TOPIRAMATE
     Indication: SEIZURE
     Route: 065
     Dates: start: 2015
  4. KEPPRA [Suspect]
     Active Substance: LEVETIRACETAM
     Indication: SEIZURE
     Dosage: 6 PILLS
     Route: 065
  5. KEPPRA [Suspect]
     Active Substance: LEVETIRACETAM
     Route: 065
     Dates: start: 2015

REACTIONS (9)
  - Lethargy [Unknown]
  - Hypokinesia [Unknown]
  - Nausea [Unknown]
  - Anxiety [Unknown]
  - Disturbance in attention [Unknown]
  - Petit mal epilepsy [Not Recovered/Not Resolved]
  - Balance disorder [Unknown]
  - Restlessness [Unknown]
  - Confusional state [Unknown]

NARRATIVE: CASE EVENT DATE: 2015
